FAERS Safety Report 4873263-6 (Version None)
Quarter: 2005Q4

REPORT INFORMATION
  Report Type: 
  Country: None (occurrence: None)
  Receive Date: 20051201
  Receipt Date: 20050821
  Transmission Date: 20060501
  Serious: No
  Sender: FDA-Public Use
  Company Number: 2005PV001292

PATIENT
  Age: 64 Year
  Sex: Female
  Weight: 99.3377 kg

DRUGS (17)
  1. BYETTA [Suspect]
     Indication: DIABETES MELLITUS NON-INSULIN-DEPENDENT
     Dosage: SEE IMAGE
     Route: 058
     Dates: start: 20050819, end: 20050909
  2. BYETTA [Suspect]
     Indication: DIABETES MELLITUS NON-INSULIN-DEPENDENT
     Dosage: SEE IMAGE
     Route: 058
     Dates: start: 20050910
  3. GLUCOPHAGE [Suspect]
     Indication: DIABETES MELLITUS NON-INSULIN-DEPENDENT
     Dosage: SEE IMAGE
     Route: 048
     Dates: start: 20050826, end: 20050101
  4. GLUCOPHAGE [Suspect]
     Indication: DIABETES MELLITUS NON-INSULIN-DEPENDENT
     Dosage: SEE IMAGE
     Route: 048
     Dates: start: 20050913, end: 20050101
  5. GLUCOPHAGE [Suspect]
     Indication: DIABETES MELLITUS NON-INSULIN-DEPENDENT
     Dosage: SEE IMAGE
     Route: 048
     Dates: start: 20050920
  6. AVANDIA [Concomitant]
  7. KLOR-CON [Concomitant]
  8. EFFEXOR [Concomitant]
  9. FUROSEMIDE [Concomitant]
  10. DIOVAN [Concomitant]
  11. ZOCOR [Concomitant]
  12. CALCIUM GLUCONATE [Concomitant]
  13. MULTIVITAMIN [Concomitant]
  14. GLUCOSAMIDE HYDROCHLORIDE/CHONDROITIN SULFATE [Concomitant]
  15. ANTIOXIDANT [Concomitant]
  16. STARLIX [Concomitant]
  17. GLUCOVANCE [Concomitant]

REACTIONS (9)
  - ABDOMINAL PAIN UPPER [None]
  - BLOOD GLUCOSE INCREASED [None]
  - DECREASED APPETITE [None]
  - DIARRHOEA [None]
  - FATIGUE [None]
  - FEELING JITTERY [None]
  - INJECTION SITE HAEMORRHAGE [None]
  - NAUSEA [None]
  - VOMITING [None]
